FAERS Safety Report 5534262-4 (Version None)
Quarter: 2007Q4

REPORT INFORMATION
  Report Type: 
  Country: None (occurrence: None)
  Receive Date: 20071205
  Receipt Date: 20071126
  Transmission Date: 20080405
  Serious: Yes (Death, Life-Threatening, Other)
  Sender: FDA-Public Use
  Company Number: GB-JNJFOC-20070702936

PATIENT
  Sex: Female
  Weight: 75 kg

DRUGS (8)
  1. REMICADE [Suspect]
     Indication: RHEUMATOID ARTHRITIS
     Route: 042
  2. BENDROFLUAZIDE [Concomitant]
  3. METHOTREXATE [Concomitant]
  4. PREDNISOLONE [Concomitant]
  5. ATENOLOL [Concomitant]
  6. COD LIVER OIL [Concomitant]
  7. MULTI-VITAMIN [Concomitant]
  8. NAPROXEN [Concomitant]

REACTIONS (6)
  - DIVERTICULAR PERFORATION [None]
  - GALLBLADDER PERFORATION [None]
  - MULTI-ORGAN FAILURE [None]
  - PERITONITIS [None]
  - SEPSIS [None]
  - THROMBOSIS MESENTERIC VESSEL [None]
